FAERS Safety Report 10638642 (Version 1)
Quarter: 2014Q4

REPORT INFORMATION
  Report Type: Spontaneous
  Country: US (occurrence: US)
  Receive Date: 20141208
  Receipt Date: 20141208
  Transmission Date: 20150529
  Serious: No
  Sender: FDA-Public Use
  Company Number: US-SA-2014SA109650

PATIENT
  Age: 77 Year
  Sex: Female

DRUGS (22)
  1. LEVALBUTEROL HYDROCHLORIDE. [Concomitant]
     Active Substance: LEVALBUTEROL HYDROCHLORIDE
  2. SERTRALINE [Concomitant]
     Active Substance: SERTRALINE HYDROCHLORIDE
  3. PROTONIX [Concomitant]
     Active Substance: PANTOPRAZOLE SODIUM
  4. ASA [Concomitant]
     Active Substance: ASPIRIN
  5. PLAVIX [Concomitant]
     Active Substance: CLOPIDOGREL BISULFATE
  6. DEXAMETHASONE. [Concomitant]
     Active Substance: DEXAMETHASONE
     Dosage: 10 CC Q 4 HR
  7. FERRLECIT [Suspect]
     Active Substance: SODIUM FERRIC GLUCONATE COMPLEX
     Indication: CHRONIC KIDNEY DISEASE
     Route: 065
     Dates: start: 20140616
  8. CENTRUM [Concomitant]
     Active Substance: VITAMINS
  9. LEVOTHYROXINE [Concomitant]
     Active Substance: LEVOTHYROXINE
  10. SEVELAMER [Concomitant]
     Active Substance: SEVELAMER
  11. INSULIN GLARGINE [Concomitant]
     Active Substance: INSULIN GLARGINE
     Dosage: DOSE:10 UNIT(S)
  12. ALL OTHER THERAPEUTIC PRODUCTS [Concomitant]
     Active Substance: UNSPECIFIED INGREDIENT
  13. NORVASC [Concomitant]
     Active Substance: AMLODIPINE BESYLATE
  14. COLACE [Concomitant]
     Active Substance: DOCUSATE SODIUM
  15. AMIODARONE [Concomitant]
     Active Substance: AMIODARONE
  16. CYCLOSPORINE. [Concomitant]
     Active Substance: CYCLOSPORINE
     Dosage: FORM: DROP
  17. HYDRALAZINE [Concomitant]
     Active Substance: HYDRALAZINE HYDROCHLORIDE
  18. INSULIN ASPART [Concomitant]
     Active Substance: INSULIN ASPART
  19. CALCIUM CARBONATE. [Concomitant]
     Active Substance: CALCIUM CARBONATE
  20. ALBUTEROL. [Concomitant]
     Active Substance: ALBUTEROL
     Dosage: 1 PUFF Q6H
  21. IPRATROPIUM [Concomitant]
     Active Substance: IPRATROPIUM
     Route: 055
  22. ZANTAC [Concomitant]
     Active Substance: RANITIDINE HYDROCHLORIDE

REACTIONS (1)
  - Alopecia [Unknown]

NARRATIVE: CASE EVENT DATE: 201406
